FAERS Safety Report 10099744 (Version 2)
Quarter: 2014Q2

REPORT INFORMATION
  Report Type: Spontaneous
  Country: US (occurrence: US)
  Receive Date: 20140423
  Receipt Date: 20140423
  Transmission Date: 20141212
  Serious: No
  Sender: FDA-Public Use
  Company Number: US-GILEAD-2013-0071631

PATIENT
  Sex: Male

DRUGS (1)
  1. LETAIRIS [Suspect]
     Indication: PULMONARY ARTERIAL HYPERTENSION
     Route: 048

REACTIONS (6)
  - Pain [Unknown]
  - Malaise [Unknown]
  - Pain in extremity [Unknown]
  - Paraesthesia [Unknown]
  - Nausea [Unknown]
  - Peripheral swelling [Unknown]
